FAERS Safety Report 10258494 (Version 10)
Quarter: 2015Q1

REPORT INFORMATION
  Report Type: Other
  Country: IT (occurrence: IT)
  Receive Date: 20140625
  Receipt Date: 20141029
  Transmission Date: 20150720
  Serious: Yes (Hospitalization)
  Sender: FDA-Public Use
  Company Number: IT-MYLANLABS-2014S1014164

PATIENT

DRUGS (8)
  1. SIMVASTATIN. [Suspect]
     Active Substance: SIMVASTATIN
     Indication: PRODUCT USED FOR UNKNOWN INDICATION
     Dosage: 280 MG,QD
     Route: 048
     Dates: start: 20140423, end: 20140423
  2. ZEFFIX [Suspect]
     Active Substance: LAMIVUDINE
     Indication: PRODUCT USED FOR UNKNOWN INDICATION
     Dosage: 140 MG,TOTAL
     Route: 048
     Dates: start: 20140423, end: 20140423
  3. VASORETIC [Suspect]
     Active Substance: ENALAPRIL MALEATE\HYDROCHLOROTHIAZIDE
     Indication: PRODUCT USED FOR UNKNOWN INDICATION
     Dosage: 227.5 MG,QD
     Route: 048
     Dates: start: 20140423, end: 20140423
  4. ZOLPIDEM [Concomitant]
     Active Substance: ZOLPIDEM\ZOLPIDEM TARTRATE
     Indication: PRODUCT USED FOR UNKNOWN INDICATION
     Dosage: 50 MG,TOTAL
     Route: 048
     Dates: start: 20140423, end: 20140423
  5. CITALOPRAM [Suspect]
     Active Substance: CITALOPRAM HYDROBROMIDE
     Indication: PRODUCT USED FOR UNKNOWN INDICATION
     Dosage: 280 MG,QD
     Route: 048
     Dates: start: 20140423, end: 20140423
  6. LANSOPRAZOLE. [Suspect]
     Active Substance: LANSOPRAZOLE
     Indication: PRODUCT USED FOR UNKNOWN INDICATION
     Dosage: 105 MG,QD
     Route: 048
     Dates: start: 20140423, end: 20140423
  7. DENIBAN [Suspect]
     Active Substance: AMISULPRIDE
     Indication: PRODUCT USED FOR UNKNOWN INDICATION
     Dosage: 500 MG,QD
     Route: 048
     Dates: start: 20140423, end: 20140423
  8. METFORMIN [Suspect]
     Active Substance: METFORMIN HYDROCHLORIDE
     Indication: PRODUCT USED FOR UNKNOWN INDICATION
     Dosage: 35000 MG,QD
     Route: 048
     Dates: start: 20140423, end: 20140423

REACTIONS (7)
  - Metabolic acidosis [Unknown]
  - Hypotension [Unknown]
  - Overdose [Recovered/Resolved]
  - Sopor [Recovered/Resolved]
  - Depressed level of consciousness [Unknown]
  - Conduction disorder [Unknown]
  - Intentional self-injury [Recovered/Resolved]

NARRATIVE: CASE EVENT DATE: 20140423
